FAERS Safety Report 4872544-X (Version None)
Quarter: 2006Q1

REPORT INFORMATION
  Report Type: 
  Country: None (occurrence: None)
  Receive Date: 20060105
  Receipt Date: 20051228
  Transmission Date: 20060701
  Serious: Yes (Other)
  Sender: FDA-Public Use
  Company Number: US-JNJFOC-20051201042

PATIENT
  Sex: Female
  Weight: 79.38 kg

DRUGS (32)
  1. REMICADE [Suspect]
     Route: 042
  2. REMICADE [Suspect]
     Route: 042
  3. REMICADE [Suspect]
     Indication: RHEUMATOID ARTHRITIS
     Route: 042
  4. ASPIRIN [Concomitant]
  5. CELEBREX [Concomitant]
     Dosage: STARTED ONE YEAR AGO
  6. SYNTHROID [Concomitant]
     Dosage: LONG TERM
  7. FOSAMAX [Concomitant]
  8. LOVASTATIN [Concomitant]
  9. METHOTREXATE [Concomitant]
  10. ARTHROGENX [Concomitant]
  11. B12 [Concomitant]
  12. FOLATE [Concomitant]
  13. BETA CAROTENE [Concomitant]
  14. BILBERRY [Concomitant]
  15. ASCORBIC ACID [Concomitant]
  16. VITAMIN D [Concomitant]
  17. VITAMIN E [Concomitant]
  18. COD LIVER OIL [Concomitant]
  19. DIABETONE [Concomitant]
  20. MEDCAPS DPO [Concomitant]
  21. MELATONIN [Concomitant]
  22. M.V.I. [Concomitant]
  23. M.V.I. [Concomitant]
  24. M.V.I. [Concomitant]
  25. M.V.I. [Concomitant]
  26. M.V.I. [Concomitant]
  27. M.V.I. [Concomitant]
  28. M.V.I. [Concomitant]
  29. M.V.I. [Concomitant]
  30. OSCAL [Concomitant]
  31. FOLIC ACID [Concomitant]
  32. ESTRING [Concomitant]

REACTIONS (1)
  - BREAST CANCER [None]
